FAERS Safety Report 7358551-6 (Version None)
Quarter: 2011Q1

REPORT INFORMATION
  Report Type: 
  Country: None (occurrence: None)
  Receive Date: 20110317
  Receipt Date: 20110308
  Transmission Date: 20110831
  Serious: Yes (Hospitalization, Other)
  Sender: FDA-Public Use
  Company Number: GB-NOVOPROD-324900

PATIENT
  Sex: Female
  Weight: 4.34 kg

DRUGS (3)
  1. BETAMETHASONE [Concomitant]
  2. INSULATARD [Suspect]
     Indication: GESTATIONAL DIABETES
     Dosage: UNK
     Route: 064
  3. METFORMIN HCL [Concomitant]
     Indication: GESTATIONAL DIABETES
     Dosage: UNK
     Route: 064

REACTIONS (3)
  - HYPOGLYCAEMIA NEONATAL [None]
  - FOETAL MACROSOMIA [None]
  - DRUG EXPOSURE DURING PREGNANCY [None]
